FAERS Safety Report 20981978 (Version 2)
Quarter: 2023Q1

REPORT INFORMATION
  Report Type: Other
  Country: US (occurrence: None)
  Receive Date: 20220620
  Receipt Date: 20230120
  Transmission Date: 20230418
  Serious: No
  Sender: FDA-Public Use
  Company Number: US-ROCHE-3119363

PATIENT
  Age: 57 Year
  Sex: Male
  Weight: 97.610 kg

DRUGS (4)
  1. OCREVUS [Suspect]
     Active Substance: OCRELIZUMAB
     Indication: Relapsing-remitting multiple sclerosis
     Dosage: 11/OCT/2021, 19/APR/2021, 22/SEP/2020, 17/MAR/2020, 05/AUG/2019, 15/APR/2022
     Route: 042
     Dates: start: 201911
  2. CARVEDILOL [Concomitant]
     Active Substance: CARVEDILOL
  3. ENALAPRIL [Concomitant]
     Active Substance: ENALAPRIL
  4. PREDNISONE [Concomitant]
     Active Substance: PREDNISONE

REACTIONS (4)
  - COVID-19 [Recovered/Resolved]
  - Weight decreased [Not Recovered/Not Resolved]
  - Off label use [Unknown]
  - Drug ineffective [Unknown]

NARRATIVE: CASE EVENT DATE: 20220611
